FAERS Safety Report 6458807-5 (Version None)
Quarter: 2009Q4

REPORT INFORMATION
  Report Type: 
  Country: None (occurrence: None)
  Receive Date: 20091127
  Receipt Date: 20091124
  Transmission Date: 20100525
  Serious: Yes (Hospitalization)
  Sender: FDA-Public Use
  Company Number: FR-ROCHE-670685

PATIENT
  Sex: Male

DRUGS (24)
  1. VALIUM [Suspect]
     Indication: DRUG USE FOR UNKNOWN INDICATION
     Route: 048
     Dates: start: 20090512
  2. VALIUM [Suspect]
     Route: 048
     Dates: start: 20090517
  3. VALIUM [Suspect]
     Route: 048
     Dates: start: 20090517, end: 20090522
  4. DEROXAT [Suspect]
     Indication: DRUG USE FOR UNKNOWN INDICATION
     Route: 065
  5. DEROXAT [Suspect]
     Route: 065
     Dates: start: 20090517
  6. LORAZEPAM [Suspect]
     Indication: DRUG USE FOR UNKNOWN INDICATION
     Dosage: START DATE: LONG TERM
     Route: 048
  7. LORAZEPAM [Suspect]
     Dosage: 2.5 MG TABLET,I DOSE FORM QD
     Route: 048
     Dates: start: 20090517, end: 20090522
  8. NEXIUM [Suspect]
     Indication: DRUG USE FOR UNKNOWN INDICATION
     Dosage: START DATE: LONG TERM
     Route: 048
  9. NEXIUM [Suspect]
     Dosage: 40 MG TABLET,1 DOSE FORM DAILY
     Route: 048
     Dates: start: 20090517, end: 20090522
  10. LOXEN [Suspect]
     Indication: DRUG USE FOR UNKNOWN INDICATION
     Dosage: START DATE: LONG TERM
     Route: 048
  11. LOXEN [Suspect]
     Dosage: DRUG REPORTED AS LOXEN LP, FORM:EXTENDED RELEASE CAP.
     Route: 048
     Dates: start: 20090517
  12. DEPAKENE [Suspect]
     Indication: DRUG USE FOR UNKNOWN INDICATION
     Dosage: LONG TERM TREATMENT
     Route: 048
  13. DEPAKENE [Suspect]
     Route: 048
     Dates: start: 20090517
  14. IXPRIM [Suspect]
     Indication: DRUG USE FOR UNKNOWN INDICATION
     Dosage: LONG TERM TREATMENT, 2 DOSES, TWICE DAILY
     Route: 048
     Dates: end: 20090513
  15. DIPIPERON [Suspect]
     Indication: DRUG USE FOR UNKNOWN INDICATION
     Route: 048
     Dates: start: 20090314
  16. DIPIPERON [Suspect]
     Route: 048
     Dates: start: 20090517
  17. DIPIPERON [Suspect]
     Route: 048
     Dates: start: 20090517, end: 20090522
  18. FURADANTIN [Suspect]
     Indication: DRUG USE FOR UNKNOWN INDICATION
     Dosage: DRUG REPORTED: FUDARANTINE
     Route: 048
     Dates: start: 20090517, end: 20090523
  19. KARDEGIC [Concomitant]
     Route: 048
     Dates: start: 20090517
  20. FORLAX [Concomitant]
     Indication: CONSTIPATION
     Dosage: 1 DOSE FORM, TWICE DAILY,START DATE : LONG TERM
     Route: 048
  21. AUGMENTIN [Concomitant]
     Route: 042
     Dates: start: 20090522, end: 20090526
  22. OFLOCET [Concomitant]
     Dosage: STRENGTH 200 MG/40 ML
     Route: 042
     Dates: start: 20090522, end: 20090526
  23. VITAMIN B1/VITAMIN B6 [Concomitant]
     Dosage: START DATE: LONG TERM
     Route: 048
  24. VITAMIN B1/VITAMIN B6 [Concomitant]
     Dosage: DRUG REPORTED AS VITAMIN B1 B6 BAYER
     Route: 048
     Dates: start: 20090517

REACTIONS (1)
  - FALL [None]
